FAERS Safety Report 8660196 (Version 2)
Quarter: 2015Q1

REPORT INFORMATION
  Report Type: Spontaneous
  Country: US (occurrence: US)
  Receive Date: 20120711
  Receipt Date: 20150126
  Transmission Date: 20150721
  Serious: Yes (Hospitalization, Other)
  Sender: FDA-Public Use
  Company Number: US-ASTRAZENECA-2012SE45090

PATIENT
  Age: 824 Month
  Sex: Female

DRUGS (1)
  1. NEXIUM [Suspect]
     Active Substance: ESOMEPRAZOLE MAGNESIUM
     Route: 048

REACTIONS (3)
  - Fall [Recovering/Resolving]
  - Wrist fracture [Recovering/Resolving]
  - Foot fracture [Unknown]

NARRATIVE: CASE EVENT DATE: 201411
